FAERS Safety Report 8819225 (Version 1)
Quarter: 2012Q4

REPORT INFORMATION
  Report Type: 
  Country: US (occurrence: US)
  Receive Date: 20121001
  Receipt Date: 20121001
  Transmission Date: 20130627
  Serious: No
  Sender: FDA-Public Use
  Company Number: US-PFIZER INC-2012239484

PATIENT
  Sex: Female

DRUGS (2)
  1. PROCARDIA XL [Suspect]
     Indication: HYPERTENSION
     Dosage: 60 mg, daily
     Route: 048
  2. MULTIVITAMINS [Concomitant]
     Dosage: UNK

REACTIONS (2)
  - Wrong technique in drug usage process [Unknown]
  - Dysphagia [Unknown]
